FAERS Safety Report 13622322 (Version 6)
Quarter: 2018Q1

REPORT INFORMATION
  Report Type: Spontaneous
  Country: US (occurrence: US)
  Receive Date: 20170607
  Receipt Date: 20180131
  Transmission Date: 20180508
  Serious: Yes (Other)
  Sender: FDA-Public Use
  Company Number: US-CLOVIS ONCOLOGY-CLO-2017-000505

PATIENT
  Sex: Female

DRUGS (3)
  1. RUBRACA [Suspect]
     Active Substance: RUCAPARIB CAMSYLATE
     Indication: OVARIAN CANCER
     Dosage: 600 MG, BID
     Route: 048
     Dates: start: 20170425, end: 201708
  2. RUBRACA [Suspect]
     Active Substance: RUCAPARIB CAMSYLATE
     Dosage: 200 MG, BID
     Route: 048
     Dates: start: 20180122
  3. RUBRACA [Suspect]
     Active Substance: RUCAPARIB CAMSYLATE
     Dosage: 200 MG, BID
     Route: 048
     Dates: start: 201708, end: 20171220

REACTIONS (15)
  - Colon operation [Unknown]
  - Platelet count decreased [Recovered/Resolved]
  - Sunburn [Recovered/Resolved]
  - Hot flush [Unknown]
  - White blood cell count decreased [Unknown]
  - Fungal infection [Unknown]
  - Frequent bowel movements [Unknown]
  - Drug dose omission [Unknown]
  - Blood potassium decreased [Unknown]
  - Headache [Unknown]
  - Contusion [Unknown]
  - Rectal haemorrhage [Recovered/Resolved]
  - Rash [Unknown]
  - Nausea [Unknown]
  - Underdose [Unknown]

NARRATIVE: CASE EVENT DATE: 2017
